FAERS Safety Report 25975445 (Version 1)
Quarter: 2025Q4

REPORT INFORMATION
  Report Type: Spontaneous
  Country: EU (occurrence: EU)
  Receive Date: 20251029
  Receipt Date: 20251029
  Transmission Date: 20260117
  Serious: Yes (Life-Threatening, Hospitalization, Other)
  Sender: FRESENIUS KABI
  Company Number: None

PATIENT
  Age: 71 Year
  Sex: Female
  Weight: 77 kg

DRUGS (2)
  1. CARBOPLATIN [Suspect]
     Active Substance: CARBOPLATIN
     Indication: Lung adenocarcinoma
     Dosage: FOA-CONCENTRATE FOR SOLUTION FOR INFUSION
     Route: 042
     Dates: start: 20250422, end: 20250429
  2. NAVELBINE [Suspect]
     Active Substance: VINORELBINE TARTRATE
     Indication: Lung adenocarcinoma
     Dosage: FOA-CAPSULE, SOFT
     Route: 048
     Dates: start: 20250422, end: 20250429

REACTIONS (4)
  - Pancytopenia [Recovering/Resolving]
  - Neutropenic colitis [Unknown]
  - Febrile neutropenia [Unknown]
  - Alopecia [Unknown]

NARRATIVE: CASE EVENT DATE: 20250501
